FAERS Safety Report 6367251-0 (Version None)
Quarter: 2009Q3

REPORT INFORMATION
  Report Type: 
  Country: None (occurrence: None)
  Receive Date: 20090921
  Receipt Date: 20090915
  Transmission Date: 20100115
  Serious: Yes (Other)
  Sender: FDA-Public Use
  Company Number: JP-MERCK-0909USA02311

PATIENT
  Sex: Female
  Weight: 1 kg

DRUGS (2)
  1. DECADRON [Suspect]
     Indication: GENITAL HAEMORRHAGE
     Route: 064
  2. DECADRON [Suspect]
     Indication: UTERINE CONTRACTIONS ABNORMAL
     Route: 064

REACTIONS (2)
  - NEONATAL RESPIRATORY DISTRESS SYNDROME [None]
  - SMALL FOR DATES BABY [None]
